FAERS Safety Report 17214701 (Version 3)
Quarter: 2020Q1

REPORT INFORMATION
  Report Type: Report from Study
  Country: IL (occurrence: IL)
  Receive Date: 20191230
  Receipt Date: 20200225
  Transmission Date: 20200409
  Serious: Yes (Hospitalization, Other)
  Sender: FDA-Public Use
  Company Number: IL-SA-2019SA359358

PATIENT
  Age: 5 Month
  Sex: Female

DRUGS (1)
  1. ALGLUCOSIDASE ALFA [Suspect]
     Active Substance: ALGLUCOSIDASE ALFA
     Indication: GLYCOGEN STORAGE DISEASE TYPE II
     Dosage: 800 UNITS; QOW
     Route: 041
     Dates: start: 20191204

REACTIONS (3)
  - Device related infection [Unknown]
  - Pyrexia [Unknown]
  - Choking [Unknown]

NARRATIVE: CASE EVENT DATE: 20191222
